FAERS Safety Report 5273738-4 (Version None)
Quarter: 2007Q1

REPORT INFORMATION
  Report Type: 
  Country: None (occurrence: None)
  Receive Date: 20070321
  Receipt Date: 20070321
  Transmission Date: 20070707
  Serious: Yes (Hospitalization)
  Sender: FDA-Public Use
  Company Number: None

PATIENT
  Age: 56 Year
  Sex: Male
  Weight: 75.2971 kg

DRUGS (5)
  1. LISINOPRIL, 10 MG, LUPIN [Suspect]
     Indication: CARDIAC DISORDER
     Dosage: 10MG 1/DAY ORAL
     Route: 048
     Dates: start: 20061017, end: 20061107
  2. LISINOPRIL, 10 MG, LUPIN [Suspect]
  3. PLAVIX [Concomitant]
  4. PROTONIX [Concomitant]
  5. TOPROL-XL [Concomitant]

REACTIONS (4)
  - ABDOMINAL PAIN UPPER [None]
  - CHEST PAIN [None]
  - ELECTROCARDIOGRAM Q WAVE ABNORMAL [None]
  - PHARMACEUTICAL PRODUCT COMPLAINT [None]
